FAERS Safety Report 9370966 (Version 2)
Quarter: 2013Q4

REPORT INFORMATION
  Report Type: Spontaneous
  Country: US (occurrence: US)
  Receive Date: 20130627
  Receipt Date: 20131203
  Transmission Date: 20140711
  Serious: Yes (Other)
  Sender: FDA-Public Use
  Company Number: US-AMGEN-USASP2013044407

PATIENT
  Age: 54 Year
  Sex: Female
  Weight: 90.91 kg

DRUGS (2)
  1. NPLATE [Suspect]
     Indication: IMMUNE THROMBOCYTOPENIC PURPURA
     Dosage: 80 MUG, QWK
     Route: 065
     Dates: start: 20130510
  2. VICTOZA [Concomitant]
     Indication: DIABETES MELLITUS

REACTIONS (5)
  - Platelet count decreased [Unknown]
  - Drug effect decreased [Unknown]
  - Stress [Unknown]
  - Blood glucose increased [Unknown]
  - Blood pressure increased [Unknown]
